FAERS Safety Report 6418518-9 (Version None)
Quarter: 2009Q4

REPORT INFORMATION
  Report Type: 
  Country: None (occurrence: None)
  Receive Date: 20091028
  Receipt Date: 20091015
  Transmission Date: 20100525
  Serious: Yes (Life-Threatening, Hospitalization, Other)
  Sender: FDA-Public Use
  Company Number: GB-AMGEN-QUU366761

PATIENT
  Sex: Male

DRUGS (11)
  1. NEULASTA [Suspect]
     Indication: CHEMOTHERAPY
     Route: 058
     Dates: start: 20090919
  2. RITUXIMAB [Concomitant]
  3. CYCLOPHOSPHAMIDE [Concomitant]
  4. DOXORUBICIN HCL [Concomitant]
  5. VINCRISTINE [Concomitant]
  6. PREDNISONE TAB [Concomitant]
     Route: 048
     Dates: start: 20090918, end: 20090922
  7. ALLOPURINOL [Concomitant]
     Route: 048
     Dates: start: 20090918
  8. OMEPRAZOLE [Concomitant]
     Route: 048
     Dates: start: 20090918, end: 20090923
  9. ACYCLOVIR [Concomitant]
     Route: 048
     Dates: start: 20090917
  10. SIMVASTATIN [Concomitant]
     Route: 048
  11. IRBESARTAN [Concomitant]
     Route: 048

REACTIONS (10)
  - DYSPNOEA [None]
  - ERYTHEMA [None]
  - EXOPHTHALMOS [None]
  - HYPERSENSITIVITY [None]
  - OROPHARYNGEAL PAIN [None]
  - PHARYNGEAL OEDEMA [None]
  - RASH ERYTHEMATOUS [None]
  - SWELLING [None]
  - SWELLING FACE [None]
  - URTICARIA [None]
